FAERS Safety Report 6116876-6 (Version None)
Quarter: 2009Q1

REPORT INFORMATION
  Report Type: 
  Country: None (occurrence: None)
  Receive Date: 20090314
  Receipt Date: 20081230
  Transmission Date: 20090719
  Serious: No
  Sender: FDA-Public Use
  Company Number: US-ABBOTT-08P-163-0495272-00

PATIENT
  Age: 59 Year
  Sex: Female
  Weight: 66.284 kg

DRUGS (9)
  1. HUMIRA [Suspect]
     Indication: CROHN'S DISEASE
     Dosage: 80MG ON 20 DEC 2008
     Route: 058
     Dates: start: 20081220, end: 20081220
  2. HUMIRA [Suspect]
     Dosage: 160MG ON 06 DEC 2008
     Route: 058
     Dates: start: 20081206, end: 20081206
  3. HUMIRA [Suspect]
     Route: 058
  4. PREDNISONE [Concomitant]
     Indication: CROHN'S DISEASE
     Dosage: PATIENT WEANING DOWN
     Route: 048
  5. XANAX [Concomitant]
     Indication: ANXIETY
     Route: 048
  6. BONIVA [Concomitant]
     Indication: DRUG USE FOR UNKNOWN INDICATION
     Route: 048
  7. TIMENOLILE DROPS [Concomitant]
     Indication: DRUG USE FOR UNKNOWN INDICATION
     Dosage: EYE DROPS, TWO TIMES A DAY
     Route: 047
  8. MULTI-VITAMIN [Concomitant]
     Indication: DRUG USE FOR UNKNOWN INDICATION
     Route: 048
  9. CALCIUM WITH VITAMIN D [Concomitant]
     Indication: DRUG USE FOR UNKNOWN INDICATION
     Route: 048

REACTIONS (2)
  - LIMB DISCOMFORT [None]
  - PAIN IN EXTREMITY [None]
